FAERS Safety Report 14172970 (Version 1)
Quarter: 2017Q4

REPORT INFORMATION
  Report Type: Spontaneous
  Country: US (occurrence: None)
  Receive Date: 20171108
  Receipt Date: 20171108
  Transmission Date: 20180321
  Serious: No
  Sender: FDA-Public Use
  Company Number: None

PATIENT
  Age: 53 Year
  Sex: Female

DRUGS (31)
  1. MAGNESIUM [Concomitant]
     Active Substance: MAGNESIUM
  2. MECLIZINE [Concomitant]
     Active Substance: MECLIZINE HYDROCHLORIDE
  3. ZANAFLEX [Concomitant]
     Active Substance: TIZANIDINE HYDROCHLORIDE
  4. ALBUTEROL. [Concomitant]
     Active Substance: ALBUTEROL
  5. ELAVIL [Concomitant]
     Active Substance: AMITRIPTYLINE HYDROCHLORIDE
  6. GABAPENTIN. [Concomitant]
     Active Substance: GABAPENTIN
  7. KLONOPIN [Concomitant]
     Active Substance: CLONAZEPAM
  8. PROMETHAZINE [Concomitant]
     Active Substance: PROMETHAZINE\PROMETHAZINE HYDROCHLORIDE
  9. VITAMIN D [Concomitant]
     Active Substance: CHOLECALCIFEROL
  10. ZOLOFT [Concomitant]
     Active Substance: SERTRALINE HYDROCHLORIDE
  11. CYMBALTA [Concomitant]
     Active Substance: DULOXETINE HYDROCHLORIDE
  12. HYOSCYAMINE. [Concomitant]
     Active Substance: HYOSCYAMINE
  13. LASIX [Concomitant]
     Active Substance: FUROSEMIDE
  14. POT CHLORIDE [Concomitant]
     Active Substance: POTASSIUM CHLORIDE
  15. PROCARDIA XL [Concomitant]
     Active Substance: NIFEDIPINE
  16. BENTYL [Concomitant]
     Active Substance: DICYCLOMINE HYDROCHLORIDE
  17. DICYCLOMINE [Concomitant]
     Active Substance: DICYCLOMINE HYDROCHLORIDE
  18. MOBIC [Concomitant]
     Active Substance: MELOXICAM
  19. PROAIR HFA [Concomitant]
     Active Substance: ALBUTEROL SULFATE
  20. REQUIP XL [Concomitant]
     Active Substance: ROPINIROLE HYDROCHLORIDE
  21. TRILEPTAL [Concomitant]
     Active Substance: OXCARBAZEPINE
  22. COSENTYX [Suspect]
     Active Substance: SECUKINUMAB
     Indication: PSORIASIS
     Dosage: TWO 150MG PENS EVERY 4 WEEKS SUB-Q
     Route: 058
     Dates: start: 20170210
  23. PROVIGIL [Concomitant]
     Active Substance: MODAFINIL
  24. VOLTAREN [Concomitant]
     Active Substance: DICLOFENAC SODIUM
  25. CLONAZEPAM. [Concomitant]
     Active Substance: CLONAZEPAM
  26. DEXILANT [Concomitant]
     Active Substance: DEXLANSOPRAZOLE
  27. LATUDA [Concomitant]
     Active Substance: LURASIDONE HYDROCHLORIDE
  28. VASOTEC [Concomitant]
     Active Substance: ENALAPRIL MALEATE
  29. TRAMADOL HCL [Concomitant]
     Active Substance: TRAMADOL HYDROCHLORIDE
  30. NITROSTAT [Concomitant]
     Active Substance: NITROGLYCERIN
  31. PEPCID [Concomitant]
     Active Substance: FAMOTIDINE

REACTIONS (1)
  - Chronic inflammatory demyelinating polyradiculoneuropathy [None]

NARRATIVE: CASE EVENT DATE: 2017
